FAERS Safety Report 4699109-7 (Version None)
Quarter: 2005Q2

REPORT INFORMATION
  Report Type: 
  Country: None (occurrence: None)
  Receive Date: 20050622
  Receipt Date: 20050610
  Transmission Date: 20051028
  Serious: Yes (Hospitalization)
  Sender: FDA-Public Use
  Company Number: 2005088221

PATIENT
  Age: 75 Year
  Sex: Male

DRUGS (10)
  1. ALDACTONE [Suspect]
     Indication: ILL-DEFINED DISORDER
     Dosage: (25 MG),ORAL
     Route: 048
  2. VERAPAMIL HYDROCHLORIDE [Suspect]
     Indication: ILL-DEFINED DISORDER
     Dosage: ORAL
     Route: 048
  3. ALLOPURINOL [Suspect]
     Indication: ILL-DEFINED DISORDER
     Dosage: ORAL
     Route: 048
  4. OFLOXACIN [Suspect]
     Indication: PROSTATITIS
     Dosage: 200 MG (200 MG,EVERY DAY),ORAL
     Route: 048
     Dates: start: 20050503
  5. PRAVASTATIN SODIUM [Suspect]
     Indication: ILL-DEFINED DISORDER
     Dosage: ORAL
     Route: 048
  6. PLAVIX [Suspect]
     Indication: ILL-DEFINED DISORDER
     Dosage: ORAL
     Route: 048
  7. LASIX [Concomitant]
  8. FONZYLANE (BUFLOMEDIL HYDROCHLORIDE) [Concomitant]
  9. APROVEL (IRBESARTAN) [Concomitant]
  10. DITROPAN [Concomitant]

REACTIONS (1)
  - HEPATITIS [None]
